FAERS Safety Report 9396810 (Version 3)
Quarter: 2013Q3

REPORT INFORMATION
  Report Type: Report from Study
  Country: IE (occurrence: IE)
  Receive Date: 20130712
  Receipt Date: 20130827
  Transmission Date: 20140515
  Serious: Yes (Death)
  Sender: FDA-Public Use
  Company Number: IE-ROCHE-1201931

PATIENT
  Sex: Female

DRUGS (63)
  1. PERTUZUMAB [Suspect]
     Indication: BREAST CANCER METASTATIC
     Route: 065
     Dates: start: 20130124
  2. PERTUZUMAB [Suspect]
     Route: 065
     Dates: start: 20130214
  3. PERTUZUMAB [Suspect]
     Route: 065
     Dates: start: 20130307
  4. TRASTUZUMAB [Suspect]
     Indication: BREAST CANCER METASTATIC
     Route: 065
     Dates: start: 200605, end: 200803
  5. TRASTUZUMAB [Suspect]
     Route: 065
     Dates: start: 200803, end: 200908
  6. TRASTUZUMAB [Suspect]
     Route: 065
     Dates: start: 200908, end: 201001
  7. TRASTUZUMAB [Suspect]
     Route: 065
     Dates: start: 201002, end: 201006
  8. TRASTUZUMAB [Suspect]
     Route: 065
     Dates: start: 201101, end: 201102
  9. TRASTUZUMAB [Suspect]
     Route: 065
     Dates: start: 201103, end: 201108
  10. TRASTUZUMAB [Suspect]
     Route: 065
     Dates: start: 201108, end: 201110
  11. TRASTUZUMAB [Suspect]
     Route: 065
     Dates: start: 201110, end: 201204
  12. TRASTUZUMAB [Suspect]
     Route: 065
     Dates: start: 201207, end: 201208
  13. TRASTUZUMAB [Suspect]
     Route: 065
     Dates: start: 20130124
  14. TRASTUZUMAB [Suspect]
     Route: 065
     Dates: start: 20130214
  15. TRASTUZUMAB [Suspect]
     Route: 065
     Dates: start: 20130307
  16. CAPECITABINE [Suspect]
     Indication: BREAST CANCER METASTATIC
     Route: 065
     Dates: start: 201002, end: 201006
  17. BEVACIZUMAB [Suspect]
     Indication: BREAST CANCER METASTATIC
     Route: 065
     Dates: start: 201108, end: 201110
  18. TAXOTERE [Suspect]
     Indication: BREAST CANCER METASTATIC
     Route: 065
     Dates: start: 200803, end: 200908
  19. LAPATINIB [Suspect]
     Indication: BREAST CANCER METASTATIC
     Route: 065
     Dates: start: 200803, end: 200808
  20. LAPATINIB [Suspect]
     Route: 065
     Dates: start: 201101, end: 201102
  21. LAPATINIB [Suspect]
     Route: 065
     Dates: start: 201110, end: 201204
  22. LAPATINIB [Suspect]
     Route: 065
     Dates: start: 201208, end: 201211
  23. LAPATINIB [Suspect]
     Route: 065
     Dates: start: 201212
  24. CARBOPLATIN [Suspect]
     Indication: BREAST CANCER METASTATIC
     Route: 065
     Dates: start: 200908, end: 201001
  25. AROMASIN [Suspect]
     Indication: BREAST CANCER METASTATIC
     Route: 065
     Dates: start: 201101, end: 201102
  26. AROMASIN [Suspect]
     Route: 065
     Dates: start: 201103, end: 201108
  27. ZOLADEX [Suspect]
     Indication: BREAST CANCER METASTATIC
     Route: 065
     Dates: start: 200605, end: 200706
  28. ZOLADEX [Suspect]
     Route: 065
     Dates: start: 201101, end: 201102
  29. ZOLADEX [Suspect]
     Route: 065
     Dates: start: 201103, end: 201108
  30. NAVELBINE [Suspect]
     Indication: BREAST CANCER METASTATIC
     Route: 065
     Dates: start: 200908, end: 201001
  31. GEMCITABINE [Suspect]
     Indication: BREAST CANCER METASTATIC
     Route: 065
     Dates: start: 201103, end: 201108
  32. CYCLOPHOSPHAMIDE [Suspect]
     Indication: BREAST CANCER METASTATIC
     Route: 065
     Dates: start: 200408, end: 200412
  33. CYCLOPHOSPHAMIDE [Suspect]
     Route: 042
     Dates: start: 20130308
  34. PACLITAXEL [Suspect]
     Indication: BREAST CANCER METASTATIC
     Route: 065
     Dates: start: 20130214
  35. PACLITAXEL [Suspect]
     Route: 065
     Dates: start: 201110, end: 201204
  36. ERIBULIN [Concomitant]
     Route: 065
     Dates: start: 201204, end: 201207
  37. EVEROLIMUS [Concomitant]
  38. MITOMYCIN C [Concomitant]
     Route: 065
     Dates: start: 201208, end: 201211
  39. TAMOXIFEN [Concomitant]
     Route: 065
     Dates: start: 200605, end: 200803
  40. DOCETAXEL [Concomitant]
     Route: 065
     Dates: start: 200408, end: 200412
  41. DOCETAXEL [Concomitant]
     Route: 065
     Dates: start: 200803, end: 200908
  42. CHLORPHENAMINE [Concomitant]
     Route: 042
  43. RANITIDINE [Concomitant]
     Route: 042
  44. DEXAMETHASONE [Concomitant]
     Route: 042
  45. OTRIVINE [Concomitant]
     Route: 045
  46. METRONIDAZOLE [Concomitant]
     Route: 065
  47. EXEMESTANE [Concomitant]
     Route: 065
  48. PREGABALIN [Concomitant]
     Route: 065
  49. HYDROMORPHONE [Concomitant]
  50. RAMIPRIL [Concomitant]
     Route: 065
  51. LYRICA [Concomitant]
     Route: 065
  52. STILNOCT [Concomitant]
     Route: 065
  53. AROMASIN [Concomitant]
     Route: 065
  54. ELTROXIN [Concomitant]
     Route: 065
  55. MYCOSTATIN MOUTHWASH [Concomitant]
     Route: 065
  56. STEMETIL [Concomitant]
     Route: 065
  57. CYCLIZINE [Concomitant]
     Route: 065
  58. PALLADONE [Concomitant]
     Route: 065
  59. BIOTINE [Concomitant]
     Dosage: MOUTHWASH
     Route: 065
  60. LACTULOSE [Concomitant]
     Route: 065
  61. ATIVAN [Concomitant]
     Route: 065
  62. CODEINE LINCTUS [Concomitant]
     Route: 065
  63. PROTIUM [Concomitant]
     Route: 065

REACTIONS (1)
  - Disease progression [Fatal]
